FAERS Safety Report 19818148 (Version 1)
Quarter: 2021Q3

REPORT INFORMATION
  Report Type: Spontaneous
  Country: US (occurrence: US)
  Receive Date: 20210911
  Receipt Date: 20210911
  Transmission Date: 20211014
  Serious: Yes (Other)
  Sender: FDA-Public Use
  Company Number: US-SHILPA MEDICARE LIMITED-SML-US-2021-01054

PATIENT

DRUGS (1)
  1. DOCETAXEL, UNKNOWN [Suspect]
     Active Substance: DOCETAXEL
     Indication: BLADDER CANCER
     Dosage: 75 MG IN 100ML OF 0.9 PERCENT SODIUM CHLORIDE (SALINE).
     Route: 043

REACTIONS (2)
  - Urinary tract infection [Unknown]
  - Off label use [Unknown]
